FAERS Safety Report 24804557 (Version 1)
Quarter: 2025Q1

REPORT INFORMATION
  Report Type: Report from Study
  Country: NL (occurrence: NL)
  Receive Date: 20250103
  Receipt Date: 20250103
  Transmission Date: 20250408
  Serious: Yes (Death, Other)
  Sender: RANBAXY
  Company Number: NL-SUN PHARMACEUTICAL INDUSTRIES LTD-2024R1-485958

PATIENT
  Sex: Female

DRUGS (1)
  1. PAZOPANIB [Suspect]
     Active Substance: PAZOPANIB
     Indication: Endometrial cancer
     Dosage: 800 MILLIGRAM, DAILY
     Route: 048

REACTIONS (2)
  - Gastrointestinal toxicity [Fatal]
  - Gastrointestinal haemorrhage [Fatal]
